FAERS Safety Report 9167683 (Version 2)
Quarter: 2013Q1

REPORT INFORMATION
  Report Type: Spontaneous
  Country: GB (occurrence: None)
  Receive Date: 20130304
  Receipt Date: 20130307
  Transmission Date: 20140127
  Serious: Yes (Other)
  Sender: FDA-Public Use
  Company Number: AUR-APL-2013-01753

PATIENT
  Age: 29 Year
  Sex: Female
  Weight: 43 kg

DRUGS (2)
  1. MIRTAZAPINE [Suspect]
     Indication: DEPRESSION
     Route: 048
     Dates: start: 20130130, end: 20130204
  2. ZOPICLONE [Concomitant]

REACTIONS (5)
  - Dermatitis allergic [None]
  - Urticaria [None]
  - Dyspnoea [None]
  - Swelling face [None]
  - Local swelling [None]
